FAERS Safety Report 5390599-3 (Version None)
Quarter: 2007Q3

REPORT INFORMATION
  Report Type: 
  Country: None (occurrence: None)
  Receive Date: 20070718
  Receipt Date: 20070519
  Transmission Date: 20080115
  Serious: No
  Sender: FDA-Public Use
  Company Number: US-KINGPHARMUSA00001-K200700649

PATIENT

DRUGS (2)
  1. LEVOXYL [Suspect]
     Dates: start: 20040101
  2. PAXIL [Suspect]
     Dates: end: 20070401

REACTIONS (2)
  - DRUG EXPOSURE DURING PREGNANCY [None]
  - PARAESTHESIA [None]
